FAERS Safety Report 8826269 (Version 1)
Quarter: 2012Q4

REPORT INFORMATION
  Report Type: 
  Country: US (occurrence: US)
  Receive Date: 20121008
  Receipt Date: 20121008
  Transmission Date: 20130627
  Serious: Yes (Hospitalization)
  Sender: FDA-Public Use
  Company Number: US-BAYER-2012-103540

PATIENT
  Age: 32 Year
  Sex: Female
  Weight: 79.82 kg

DRUGS (5)
  1. YASMIN [Suspect]
  2. OCELLA [Suspect]
  3. PREDNISONE [Concomitant]
  4. FLUCONAZOLE [Concomitant]
  5. AZITHROMYCIN [Concomitant]

REACTIONS (1)
  - Pulmonary embolism [None]
